FAERS Safety Report 6721630-8 (Version None)
Quarter: 2010Q2

REPORT INFORMATION
  Report Type: 
  Country: None (occurrence: None)
  Receive Date: 20100512
  Receipt Date: 20100504
  Transmission Date: 20101027
  Serious: Yes (Hospitalization)
  Sender: FDA-Public Use
  Company Number: US-JNJFOC-20100501797

PATIENT
  Sex: Male
  Weight: 64.86 kg

DRUGS (9)
  1. FENTANYL CITRATE [Suspect]
     Indication: PAIN
     Route: 062
  2. FENTANYL CITRATE [Suspect]
     Dosage: NDC#: 0781-7114-55
     Route: 062
  3. FENTANYL CITRATE [Suspect]
     Dosage: NDC#: 0781-7114-55
     Route: 062
  4. DURAGESIC-100 [Suspect]
     Indication: PAIN
     Route: 062
  5. DURAGESIC-100 [Suspect]
     Dosage: 100UG/HR AND 75 UG/HR
     Route: 062
  6. DURAGESIC-100 [Suspect]
     Route: 062
  7. FENTANYL-100 [Suspect]
     Indication: PAIN
     Route: 062
  8. TRIAZOLAM [Concomitant]
     Indication: SLEEP DISORDER
     Route: 048
  9. PERCOCET [Concomitant]
     Indication: PAIN
     Dosage: DOSE: 10/325 MG
     Route: 048

REACTIONS (10)
  - DIZZINESS [None]
  - DRUG INEFFECTIVE [None]
  - FACIAL BONES FRACTURE [None]
  - FALL [None]
  - HERNIA [None]
  - NASAL CYST [None]
  - NERVOUSNESS [None]
  - PRODUCT QUALITY ISSUE [None]
  - ROTATOR CUFF SYNDROME [None]
  - WRONG TECHNIQUE IN DRUG USAGE PROCESS [None]
